FAERS Safety Report 9812634 (Version 1)
Quarter: 2014Q1

REPORT INFORMATION
  Report Type: Report from Study
  Country: GB (occurrence: GB)
  Receive Date: 20140113
  Receipt Date: 20140113
  Transmission Date: 20141002
  Serious: Yes (Hospitalization)
  Sender: FDA-Public Use
  Company Number: GB-ROCHE-1331453

PATIENT
  Sex: Female
  Weight: 75 kg

DRUGS (2)
  1. RITUXIMAB [Suspect]
     Indication: RHEUMATOID ARTHRITIS
     Dosage: LAST DOSE PRIOR TO THE EVENT WAS ON 24/JUL/2013
     Route: 065
     Dates: start: 20091202
  2. METHOTREXATE [Concomitant]

REACTIONS (2)
  - Road traffic accident [Unknown]
  - Post-traumatic neck syndrome [Recovered/Resolved]
